FAERS Safety Report 10184116 (Version 1)
Quarter: 2014Q2

REPORT INFORMATION
  Report Type: Spontaneous
  Country: US (occurrence: US)
  Receive Date: 20140520
  Receipt Date: 20140520
  Transmission Date: 20141212
  Serious: No
  Sender: FDA-Public Use
  Company Number: US-ASTRAZENECA-2014SE17211

PATIENT
  Age: 32 Year
  Sex: Female

DRUGS (2)
  1. ENTOCORT EC [Suspect]
     Route: 048
     Dates: start: 20140227
  2. CIMZIA [Concomitant]

REACTIONS (2)
  - Psychotic disorder [Unknown]
  - Drug intolerance [Unknown]
